FAERS Safety Report 9224516 (Version 1)
Quarter: 2013Q2

REPORT INFORMATION
  Report Type: Spontaneous
  Country: US (occurrence: None)
  Receive Date: 20130410
  Receipt Date: 20130410
  Transmission Date: 20140414
  Serious: Yes (Hospitalization)
  Sender: FDA-Public Use
  Company Number: None

PATIENT
  Age: 78 Year
  Sex: Male
  Weight: 94.4 kg

DRUGS (2)
  1. BEVACIZUMAB (RHUMAB VEGF) (704865) [Suspect]
  2. XELODA [Suspect]

REACTIONS (3)
  - Oedema [None]
  - Blood pressure increased [None]
  - Oedema peripheral [None]
